FAERS Safety Report 24730041 (Version 1)
Quarter: 2024Q4

REPORT INFORMATION
  Report Type: Spontaneous
  Country: ES (occurrence: ES)
  Receive Date: 20241213
  Receipt Date: 20241213
  Transmission Date: 20250115
  Serious: Yes (Other)
  Sender: AUROBINDO
  Company Number: ES-AEMPS-1601888

PATIENT
  Age: 46 Year
  Sex: Female

DRUGS (4)
  1. PIPERACILLIN AND TAZOBACTAM [Interacting]
     Active Substance: PIPERACILLIN SODIUM\TAZOBACTAM SODIUM
     Indication: Pneumonia klebsiella
     Dosage: UNK
     Route: 042
     Dates: start: 20240725, end: 20240730
  2. ERTAPENEM [Interacting]
     Active Substance: ERTAPENEM
     Indication: Pneumonia klebsiella
     Dosage: UNK
     Route: 042
     Dates: start: 20240810, end: 20240812
  3. MEROPENEM [Interacting]
     Active Substance: MEROPENEM
     Indication: Pneumonia klebsiella
     Dosage: UNK
     Route: 042
     Dates: start: 20240812, end: 20240820
  4. MEROPENEM [Concomitant]
     Active Substance: MEROPENEM
     Indication: Pneumonia klebsiella
     Dosage: UNK
     Route: 042
     Dates: start: 20240730, end: 20240810

REACTIONS (1)
  - Clostridium difficile colitis [Recovered/Resolved]

NARRATIVE: CASE EVENT DATE: 20240828
